FAERS Safety Report 6830737-6 (Version None)
Quarter: 2010Q3

REPORT INFORMATION
  Report Type: 
  Country: None (occurrence: None)
  Receive Date: 20100709
  Receipt Date: 20100709
  Transmission Date: 20110219
  Serious: Yes (Hospitalization)
  Sender: FDA-Public Use
  Company Number: None

PATIENT
  Age: 62 Year
  Sex: Male
  Weight: 115.21 kg

DRUGS (1)
  1. FONDAPARINUX SODIUM [Suspect]
     Indication: THROMBOSIS PROPHYLAXIS
     Dosage: SQ
     Route: 058
     Dates: start: 20100202, end: 20100402

REACTIONS (8)
  - CARDIAC ARREST [None]
  - ELECTROMECHANICAL DISSOCIATION [None]
  - HYPOXIA [None]
  - INCREASED VISCOSITY OF BRONCHIAL SECRETION [None]
  - LETHARGY [None]
  - PULMONARY EMBOLISM [None]
  - SPUTUM DISCOLOURED [None]
  - TREATMENT FAILURE [None]
